FAERS Safety Report 9393335 (Version 1)
Quarter: 2013Q3

REPORT INFORMATION
  Report Type: Spontaneous
  Country: FR (occurrence: FR)
  Receive Date: 20130710
  Receipt Date: 20130710
  Transmission Date: 20140515
  Serious: Yes (Hospitalization, Other)
  Sender: FDA-Public Use
  Company Number: FR-PFIZER INC-2013199757

PATIENT
  Age: 85 Year
  Sex: Female

DRUGS (8)
  1. XANAX [Suspect]
     Dosage: 0.25 MG, 3X/DAY
     Route: 048
     Dates: end: 20130219
  2. HAVLANE [Suspect]
     Dosage: 1 DF, 1X/DAY
     Route: 048
     Dates: end: 20130219
  3. ATACAND [Concomitant]
  4. DEROXAT [Concomitant]
  5. APROVEL [Concomitant]
  6. BENERVA [Concomitant]
  7. DAFALGAN [Concomitant]
  8. MOVICOL [Concomitant]

REACTIONS (2)
  - Grand mal convulsion [Recovered/Resolved]
  - Dyspnoea [Unknown]
